FAERS Safety Report 7365953 (Version 3)
Quarter: 2022Q4

REPORT INFORMATION
  Report Type: Other
  Country: KR (occurrence: None)
  Receive Date: 20100426
  Receipt Date: 20221130
  Transmission Date: 20230113
  Serious: Yes (Other)
  Sender: FDA-Public Use
  Company Number: KR-ROCHE-696957

PATIENT
  Age: 53 Year
  Sex: Male

DRUGS (2)
  1. BEVACIZUMAB [Suspect]
     Active Substance: BEVACIZUMAB
     Indication: Tractional retinal detachment
     Dosage: 1.25 MG PER 0.05 ML
     Route: 050
  2. BEVACIZUMAB [Suspect]
     Active Substance: BEVACIZUMAB
     Indication: Vitreous haemorrhage

REACTIONS (6)
  - Bacterial endophthalmitis [Not Recovered/Not Resolved]
  - Suspected transmission of an infectious agent via product [Unknown]
  - Blindness [Not Recovered/Not Resolved]
  - Atrophy of globe [Not Recovered/Not Resolved]
  - Off label use [Unknown]
  - Off label use [Unknown]
